FAERS Safety Report 12988481 (Version 2)
Quarter: 2016Q4

REPORT INFORMATION
  Report Type: Spontaneous
  Country: US (occurrence: US)
  Receive Date: 20161130
  Receipt Date: 20161227
  Transmission Date: 20170207
  Serious: No
  Sender: FDA-Public Use
  Company Number: US-PFIZER INC-2016546158

PATIENT
  Sex: Female

DRUGS (1)
  1. SULFASALAZINE. [Suspect]
     Active Substance: SULFASALAZINE
     Dosage: UNK

REACTIONS (4)
  - Drug ineffective [Unknown]
  - Drug hypersensitivity [Unknown]
  - Nausea [Unknown]
  - Reaction to drug excipients [Unknown]
